FAERS Safety Report 18395528 (Version 1)
Quarter: 2020Q4

REPORT INFORMATION
  Report Type: Spontaneous
  Country: GB (occurrence: GB)
  Receive Date: 20201017
  Receipt Date: 20201017
  Transmission Date: 20210114
  Serious: Yes (Other)
  Sender: FDA-Public Use
  Company Number: GB-ACCORD-205121

PATIENT
  Age: 29 Year
  Sex: Female
  Weight: 58 kg

DRUGS (5)
  1. GEDAREL [Concomitant]
  2. OMEPRAZOLE. [Concomitant]
     Active Substance: OMEPRAZOLE
  3. PROCHLORPERAZINE. [Concomitant]
     Active Substance: PROCHLORPERAZINE
  4. SERTRALINE [Suspect]
     Active Substance: SERTRALINE HYDROCHLORIDE
     Indication: ANXIETY
     Route: 048
     Dates: start: 20200915, end: 20200919
  5. SILYBUM MARIANUM/SILYBUM MARIANUM EXTRACT/SILYBUM MARIANUM FRUIT [Concomitant]
     Dosage: MILK THISTLE

REACTIONS (4)
  - Hot flush [Recovered/Resolved]
  - Tremor [Recovered/Resolved]
  - Nausea [Recovering/Resolving]
  - Self-injurious ideation [Recovered/Resolved]

NARRATIVE: CASE EVENT DATE: 20200915
